FAERS Safety Report 25590947 (Version 1)
Quarter: 2025Q3

REPORT INFORMATION
  Report Type: Spontaneous
  Country: CN (occurrence: CN)
  Receive Date: 20250722
  Receipt Date: 20250722
  Transmission Date: 20251021
  Serious: Yes (Life-Threatening)
  Sender: BAYER HEALTHCARE PHARMACEUTICALS INC.
  Company Number: CN-BAYER-2025A097431

PATIENT
  Age: 77 Year
  Sex: Female

DRUGS (1)
  1. ULTRAVIST [Suspect]
     Active Substance: IOPROMIDE
     Indication: Computerised tomogram heart
     Route: 042
     Dates: start: 20250707, end: 20250707

REACTIONS (3)
  - Blood pressure increased [Recovering/Resolving]
  - Skin warm [Recovering/Resolving]
  - Flushing [None]

NARRATIVE: CASE EVENT DATE: 20250707
